FAERS Safety Report 7393430-X (Version None)
Quarter: 2011Q2

REPORT INFORMATION
  Report Type: 
  Country: None (occurrence: None)
  Receive Date: 20110405
  Receipt Date: 20110323
  Transmission Date: 20111010
  Serious: Yes (Other)
  Sender: FDA-Public Use
  Company Number: CH-RANBAXY-2011RR-43480

PATIENT
  Age: 40 Year
  Sex: Female

DRUGS (2)
  1. TAVANIC [Suspect]
     Indication: PNEUMONIA BACTERIAL
     Dosage: 500 MG, BID
     Route: 065
     Dates: start: 20110209, end: 20110215
  2. AMOXICILLIN [Suspect]
     Indication: PNEUMONIA BACTERIAL
     Dosage: 3 G, UNK
     Dates: start: 20110128, end: 20110208

REACTIONS (1)
  - DRUG EXPOSURE DURING PREGNANCY [None]
